FAERS Safety Report 4925422-1 (Version None)
Quarter: 2006Q1

REPORT INFORMATION
  Report Type: 
  Country: None (occurrence: None)
  Receive Date: 20060228
  Receipt Date: 20050216
  Transmission Date: 20060701
  Serious: No
  Sender: FDA-Public Use
  Company Number: US-GLAXOSMITHKLINE-A0545943A

PATIENT

DRUGS (10)
  1. LAMICTAL [Suspect]
     Indication: BIPOLAR DISORDER
     Dosage: 25MG PER DAY
     Route: 048
  2. DEPAKOTE [Concomitant]
  3. NORVASC [Concomitant]
  4. MONOPRIL [Concomitant]
  5. LEXAPRO [Concomitant]
  6. LIBRAX [Concomitant]
  7. FUROSEMIDE [Concomitant]
  8. ZANTAC [Concomitant]
  9. VALIUM [Concomitant]
  10. CEPHALEXIN [Concomitant]

REACTIONS (1)
  - HICCUPS [None]
